FAERS Safety Report 5425019-3 (Version None)
Quarter: 2007Q3

REPORT INFORMATION
  Report Type: 
  Country: None (occurrence: None)
  Receive Date: 20070822
  Receipt Date: 20070808
  Transmission Date: 20080115
  Serious: Yes (Other)
  Sender: FDA-Public Use
  Company Number: 2007US001886

PATIENT
  Sex: Male

DRUGS (1)
  1. PROGRAF [Suspect]
     Indication: HEART TRANSPLANT

REACTIONS (15)
  - CANDIDIASIS [None]
  - CARDIAC FAILURE [None]
  - DIASTOLIC DYSFUNCTION [None]
  - HAEMODIALYSIS [None]
  - HAEMODYNAMIC INSTABILITY [None]
  - LIVEDO RETICULARIS [None]
  - OEDEMA PERIPHERAL [None]
  - PERICARDIAL EFFUSION [None]
  - PERICARDITIS FUNGAL [None]
  - PERIPHERAL COLDNESS [None]
  - POST PROCEDURAL COMPLICATION [None]
  - RENAL FAILURE ACUTE [None]
  - RIGHT VENTRICULAR FAILURE [None]
  - SKIN NECROSIS [None]
  - WHITE BLOOD CELL COUNT INCREASED [None]
